FAERS Safety Report 5198713-X (Version None)
Quarter: 2007Q1

REPORT INFORMATION
  Report Type: 
  Country: None (occurrence: None)
  Receive Date: 20070104
  Receipt Date: 20061222
  Transmission Date: 20070707
  Serious: Yes (Hospitalization)
  Sender: FDA-Public Use
  Company Number: US-ELI_LILLY_AND_COMPANY-US200612004140

PATIENT
  Age: 79 Year
  Sex: Female

DRUGS (14)
  1. CYMBALTA [Suspect]
     Indication: DEPRESSION
     Dosage: 60 MG, DAILY (1/D)
  2. ULTRAM [Concomitant]
     Dosage: UNK, UNK
     Dates: start: 20061215, end: 20061201
  3. PLAQUINOL [Concomitant]
     Dosage: UNK MG, DAILY (1/D)
  4. METHOTREXATE [Concomitant]
  5. FOSAMAX                                 /ITA/ [Concomitant]
     Dosage: 70 MG, UNK
  6. XANAX                                   /USA/ [Concomitant]
     Dosage: UNK, UNK
     Dates: end: 20061201
  7. SONATA [Concomitant]
  8. DETROL [Concomitant]
  9. FOLIC ACID [Concomitant]
  10. ASPIRIN [Concomitant]
     Dosage: 81 MG, UNK
  11. DICLOFENAC SODIUM [Concomitant]
  12. AMOXICILLIN [Concomitant]
     Indication: INFECTION
     Dosage: UNK MG, UNK
     Dates: start: 20061201
  13. ATIVAN [Concomitant]
     Dosage: UNK MG, UNK
     Dates: start: 20061201
  14. DARVOCET-N 100 [Concomitant]
     Dates: start: 20061201

REACTIONS (13)
  - ACCIDENTAL OVERDOSE [None]
  - AGGRESSION [None]
  - AGITATION [None]
  - ANXIETY [None]
  - BALANCE DISORDER [None]
  - CONFUSIONAL STATE [None]
  - FALL [None]
  - HUMERUS FRACTURE [None]
  - INFECTION [None]
  - IRRITABILITY [None]
  - JOINT DISLOCATION [None]
  - LETHARGY [None]
  - SPINAL FRACTURE [None]
